FAERS Safety Report 9820735 (Version 1)
Quarter: 2013Q4

REPORT INFORMATION
  Report Type: Spontaneous
  Country: US (occurrence: None)
  Receive Date: 20131028
  Receipt Date: 20131028
  Transmission Date: 20140711
  Serious: Yes (Other)
  Sender: FDA-Public Use
  Company Number: 2013US001380

PATIENT
  Age: 78 Year
  Sex: 0
  Weight: 68 kg

DRUGS (6)
  1. ICLUSIG [Suspect]
     Indication: CHRONIC MYELOID LEUKAEMIA
     Route: 048
     Dates: start: 20130218
  2. ALLOPURINOL (ALLOPURINOL) [Concomitant]
  3. LEVOTHYROXINE (LEVOTHYROXINE) [Concomitant]
  4. OMEGA 3 (FISH OIL) [Concomitant]
  5. BABY ASPIRIN (ACETYLSALICYLIC ACID) [Concomitant]
  6. VITAMINS LIQUID [Concomitant]

REACTIONS (1)
  - Pollakiuria [None]
